FAERS Safety Report 16705114 (Version 2)
Quarter: 2019Q4

REPORT INFORMATION
  Report Type: Report from Study
  Country: JP (occurrence: JP)
  Receive Date: 20190815
  Receipt Date: 20191002
  Transmission Date: 20200122
  Serious: Yes (Other)
  Sender: FDA-Public Use
  Company Number: JP-AMGEN-JPNCT2019129901

PATIENT
  Age: 70 Year
  Sex: Male

DRUGS (10)
  1. DARBEPOETIN ALFA [Suspect]
     Active Substance: DARBEPOETIN ALFA
     Dosage: 240 MICROGRAM, QWK
     Route: 058
     Dates: start: 20181203, end: 20181225
  2. DARBEPOETIN ALFA [Suspect]
     Active Substance: DARBEPOETIN ALFA
     Dosage: 240 MICROGRAM, Q3WK
     Route: 058
     Dates: start: 20180618, end: 20180709
  3. JADENU [Concomitant]
     Active Substance: DEFERASIROX
     Dosage: 360 MG
     Route: 048
     Dates: start: 20190205, end: 20190401
  4. DARBEPOETIN ALFA [Suspect]
     Active Substance: DARBEPOETIN ALFA
     Dosage: 240 MICROGRAM, QWK
     Route: 058
     Dates: start: 20190108, end: 20190319
  5. JADENU [Concomitant]
     Active Substance: DEFERASIROX
     Indication: IRON OVERLOAD
     Dosage: 90 MILLIGRAM
     Route: 048
     Dates: start: 20181112, end: 20181125
  6. DARBEPOETIN ALFA [Suspect]
     Active Substance: DARBEPOETIN ALFA
     Indication: MYELODYSPLASTIC SYNDROME
     Dosage: 240 MICROGRAM, Q4WK
     Route: 058
     Dates: start: 20180409, end: 20180604
  7. DARBEPOETIN ALFA [Suspect]
     Active Substance: DARBEPOETIN ALFA
     Dosage: 240 MICROGRAM, Q4WK
     Route: 058
     Dates: start: 20180723, end: 20181126
  8. JADENU [Concomitant]
     Active Substance: DEFERASIROX
     Dosage: 450 MILLIGRAM
     Route: 048
     Dates: start: 20190402
  9. JADENU [Concomitant]
     Active Substance: DEFERASIROX
     Dosage: 180 MILLIGRAM
     Route: 048
     Dates: start: 20181126, end: 20181216
  10. JADENU [Concomitant]
     Active Substance: DEFERASIROX
     Dosage: 270 MG
     Route: 048
     Dates: start: 20181217, end: 20190204

REACTIONS (2)
  - Transformation to acute myeloid leukaemia [Unknown]
  - Iron overload [Not Recovered/Not Resolved]

NARRATIVE: CASE EVENT DATE: 20181112
